FAERS Safety Report 5856109-9 (Version None)
Quarter: 2008Q3

REPORT INFORMATION
  Report Type: 
  Country: None (occurrence: None)
  Receive Date: 20080818
  Receipt Date: 20080613
  Transmission Date: 20090109
  Serious: No
  Sender: FDA-Public Use
  Company Number: 08H-163-0314309-00

PATIENT
  Age: 41 Year
  Sex: Male
  Weight: 75.7507 kg

DRUGS (12)
  1. VANCOMYCIN HCL [Suspect]
     Dosage: SEE IMAGE
     Route: 042
     Dates: start: 20080425, end: 20080425
  2. VANCOMYCIN HCL [Suspect]
     Dosage: SEE IMAGE
     Route: 042
     Dates: start: 20080426, end: 20080501
  3. VANCOMYCIN HCL [Suspect]
     Dosage: SEE IMAGE
     Route: 042
     Dates: start: 20080502, end: 20080502
  4. VANCOMYCIN HCL [Suspect]
     Dosage: SEE IMAGE
     Route: 042
     Dates: start: 20080502, end: 20080502
  5. SERTRALINE [Concomitant]
  6. ACYCLOVAR (ACICLOVIR) [Concomitant]
  7. AZITHROMYCIN [Concomitant]
  8. DAPSONE [Concomitant]
  9. FENTANYL-100 [Concomitant]
  10. FLUCONAZOLE [Concomitant]
  11. RIFAMPICIN [Concomitant]
  12. GABAPENTIN [Concomitant]

REACTIONS (1)
  - BLOOD CREATININE INCREASED [None]
